FAERS Safety Report 12604546 (Version 1)
Quarter: 2016Q3

REPORT INFORMATION
  Report Type: Spontaneous
  Country: US (occurrence: US)
  Receive Date: 20160728
  Receipt Date: 20160728
  Transmission Date: 20161109
  Serious: Yes (Hospitalization, Other)
  Sender: FDA-Public Use
  Company Number: US-ALEXION PHARMACEUTICALS INC.-A201605433

PATIENT
  Sex: Female

DRUGS (1)
  1. SOLIRIS [Suspect]
     Active Substance: ECULIZUMAB
     Indication: PAROXYSMAL NOCTURNAL HAEMOGLOBINURIA
     Dosage: UNK
     Route: 042

REACTIONS (11)
  - Confusional state [Not Recovered/Not Resolved]
  - Erythema [Unknown]
  - Acute kidney injury [Not Recovered/Not Resolved]
  - Platelet count decreased [Not Recovered/Not Resolved]
  - Pain in extremity [Unknown]
  - Anaemia [Not Recovered/Not Resolved]
  - Haemoglobin decreased [Unknown]
  - Deep vein thrombosis [Not Recovered/Not Resolved]
  - Mental status changes [Not Recovered/Not Resolved]
  - Peripheral swelling [Unknown]
  - Skin warm [Unknown]

NARRATIVE: CASE EVENT DATE: 20160711
